FAERS Safety Report 7869100-8 (Version None)
Quarter: 2011Q4

REPORT INFORMATION
  Report Type: 
  Country: None (occurrence: None)
  Receive Date: 20111021
  Receipt Date: 20111014
  Transmission Date: 20120403
  Serious: Yes (Hospitalization, Other)
  Sender: FDA-Public Use
  Company Number: 2010SP062574

PATIENT
  Age: 42 Year
  Sex: Female
  Weight: 57.1532 kg

DRUGS (2)
  1. NUVARING [Suspect]
     Indication: MENSTRUAL DISORDER
     Dates: start: 20060101, end: 20081201
  2. NUVARING [Suspect]
     Indication: CONTRACEPTION
     Dates: start: 20060101, end: 20081201

REACTIONS (27)
  - BREAST CYST [None]
  - LIGAMENT SPRAIN [None]
  - WEIGHT INCREASED [None]
  - BACK PAIN [None]
  - ALOPECIA [None]
  - CEREBRAL ARTERY STENOSIS [None]
  - AMNESIA [None]
  - ANAEMIA [None]
  - FATIGUE [None]
  - ANAPHYLACTIC SHOCK [None]
  - NAUSEA [None]
  - RHEUMATOID FACTOR INCREASED [None]
  - ASTHMA [None]
  - PITUITARY TUMOUR BENIGN [None]
  - CEREBROVASCULAR ACCIDENT [None]
  - INTERVERTEBRAL DISC DEGENERATION [None]
  - VISUAL ACUITY REDUCED [None]
  - TRANSIENT ISCHAEMIC ATTACK [None]
  - NECK PAIN [None]
  - VOMITING [None]
  - FEAR [None]
  - DEPRESSION [None]
  - EMOTIONAL DISORDER [None]
  - LOSS OF CONSCIOUSNESS [None]
  - MENTAL DISORDER [None]
  - COGNITIVE DISORDER [None]
  - DRUG HYPERSENSITIVITY [None]
